FAERS Safety Report 4274109-X (Version None)
Quarter: 2004Q1

REPORT INFORMATION
  Report Type: 
  Country: None (occurrence: None)
  Receive Date: 20040120
  Receipt Date: 20040112
  Transmission Date: 20041129
  Serious: Yes (Other)
  Sender: FDA-Public Use
  Company Number: FR-GLAXOSMITHKLINE-B0319493A

PATIENT
  Age: 36 Year
  Sex: Female

DRUGS (1)
  1. ZYBAN [Suspect]
     Dosage: 150MG SEE DOSAGE TEXT
     Route: 048
     Dates: start: 20030301, end: 20030430

REACTIONS (5)
  - ANOREXIA [None]
  - BALANCE DISORDER [None]
  - DEPRESSION [None]
  - LYMPHADENOPATHY [None]
  - WEIGHT DECREASED [None]
